FAERS Safety Report 13240455 (Version 1)
Quarter: 2017Q1

REPORT INFORMATION
  Report Type: Spontaneous
  Country: US (occurrence: US)
  Receive Date: 20170216
  Receipt Date: 20170216
  Transmission Date: 20170428
  Serious: No
  Sender: FDA-Public Use
  Company Number: US-RELYPSA-RLY2016003611

PATIENT
  Age: 67 Year
  Sex: Male

DRUGS (17)
  1. VELTASSA [Suspect]
     Active Substance: PATIROMER
     Indication: HYPERKALAEMIA
     Dosage: 8.4 G, QOD
     Route: 048
     Dates: start: 20160503
  2. ALLOPURINOL. [Concomitant]
     Active Substance: ALLOPURINOL
  3. LIPITOR [Concomitant]
     Active Substance: ATORVASTATIN CALCIUM
  4. SENSIPAR [Concomitant]
     Active Substance: CINACALCET HYDROCHLORIDE
  5. PROGRAF [Concomitant]
     Active Substance: TACROLIMUS\TACROLIMUS ANHYDROUS
  6. NIFEDIPINE. [Concomitant]
     Active Substance: NIFEDIPINE
  7. COLCRYS [Concomitant]
     Active Substance: COLCHICINE
  8. ASPIRIN 81 [Concomitant]
     Active Substance: ASPIRIN
  9. COREG [Concomitant]
     Active Substance: CARVEDILOL
  10. GLIPIZIDE. [Concomitant]
     Active Substance: GLIPIZIDE
  11. VITAMIN D2 [Concomitant]
     Active Substance: ERGOCALCIFEROL
  12. FUROSEMIDE. [Concomitant]
     Active Substance: FUROSEMIDE
  13. TACROLIMUS. [Concomitant]
     Active Substance: TACROLIMUS
  14. AMBIEN [Concomitant]
     Active Substance: ZOLPIDEM TARTRATE
  15. PERCOCET                           /00446701/ [Concomitant]
     Active Substance: ACETAMINOPHEN\OXYCODONE HYDROCHLORIDE\OXYCODONE TEREPHTHALATE
  16. ATORVASTATIN CALCIUM. [Concomitant]
     Active Substance: ATORVASTATIN CALCIUM
  17. IMURAN [Concomitant]
     Active Substance: AZATHIOPRINE

REACTIONS (2)
  - Inappropriate schedule of drug administration [Not Recovered/Not Resolved]
  - Constipation [Recovered/Resolved]

NARRATIVE: CASE EVENT DATE: 2016
